FAERS Safety Report 5128497-2 (Version None)
Quarter: 2006Q4

REPORT INFORMATION
  Report Type: 
  Country: None (occurrence: None)
  Receive Date: 20061017
  Receipt Date: 20060103
  Transmission Date: 20070319
  Serious: Yes (Death, Life-Threatening, Hospitalization, Other)
  Sender: FDA-Public Use
  Company Number: US-BAYER-200610045BWH

PATIENT
  Age: 63 Year
  Sex: Male
  Weight: 67 kg

DRUGS (10)
  1. SORAFENIB [Suspect]
     Indication: METASTATIC RENAL CELL CARCINOMA
     Dosage: TOTAL DAILY DOSE: 800 MG  UNIT DOSE: 200 MG
     Route: 048
     Dates: start: 20051223, end: 20060107
  2. DECADRON [Concomitant]
     Indication: PAIN
     Route: 048
  3. ADVAIR DISKUS 100/50 [Concomitant]
     Indication: DYSPNOEA
     Route: 055
  4. COMBIVENT [Concomitant]
     Indication: DYSPNOEA
     Route: 055
  5. LISINOPRIL [Concomitant]
     Indication: HYPERTENSION
     Route: 048
  6. PHENERGAN W/ CODEINE [Concomitant]
     Indication: COUGH
     Route: 048
  7. NICOTINE [Concomitant]
     Indication: EX-SMOKER
     Route: 061
  8. MAALOX FAST BLOCKER [Concomitant]
  9. AMBIEN [Concomitant]
     Indication: SLEEP DISORDER
  10. LOVASTATIN [Concomitant]

REACTIONS (6)
  - DISEASE PROGRESSION [None]
  - GASTRIC PERFORATION [None]
  - LOBAR PNEUMONIA [None]
  - METASTATIC RENAL CELL CARCINOMA [None]
  - PERITONITIS [None]
  - RESPIRATORY FAILURE [None]
